FAERS Safety Report 16612046 (Version 1)
Quarter: 2019Q3

REPORT INFORMATION
  Report Type: Spontaneous
  Country: US (occurrence: US)
  Receive Date: 20190722
  Receipt Date: 20190722
  Transmission Date: 20191004
  Serious: Yes (Hospitalization, Other)
  Sender: FDA-Public Use
  Company Number: US-ROCHE-2276834

PATIENT
  Age: 63 Year
  Sex: Female

DRUGS (3)
  1. ATEZOLIZUMAB. [Suspect]
     Active Substance: ATEZOLIZUMAB
     Indication: TRANSITIONAL CELL CARCINOMA
     Route: 042
  2. CISPLATIN. [Concomitant]
     Active Substance: CISPLATIN
  3. GEMCITABINE. [Concomitant]
     Active Substance: GEMCITABINE

REACTIONS (4)
  - Type 1 diabetes mellitus [Recovering/Resolving]
  - Blood thyroid stimulating hormone increased [Unknown]
  - Pyrexia [Unknown]
  - Diabetic ketoacidosis [Recovering/Resolving]
